FAERS Safety Report 7716170-3 (Version None)
Quarter: 2011Q3

REPORT INFORMATION
  Report Type: 
  Country: None (occurrence: None)
  Receive Date: 20110829
  Receipt Date: 20110817
  Transmission Date: 20111222
  Serious: Yes (Hospitalization)
  Sender: FDA-Public Use
  Company Number: DE-ELI_LILLY_AND_COMPANY-DE201108005188

PATIENT
  Age: 42 Year
  Sex: Male

DRUGS (1)
  1. ZYPREXA [Suspect]
     Indication: PSYCHOTIC DISORDER
     Dosage: 2.5 MG, UNK
     Route: 048
     Dates: start: 20090401, end: 20110301

REACTIONS (5)
  - CARDIAC DISORDER [None]
  - CHOKING [None]
  - DYSPHAGIA [None]
  - FLOPPY EYELID SYNDROME [None]
  - WRONG TECHNIQUE IN DRUG USAGE PROCESS [None]
